FAERS Safety Report 22762258 (Version 6)
Quarter: 2024Q3

REPORT INFORMATION
  Report Type: Spontaneous
  Country: CO (occurrence: CO)
  Receive Date: 20230728
  Receipt Date: 20240702
  Transmission Date: 20241017
  Serious: Yes (Other)
  Sender: LUNDBECK
  Company Number: CO-SA-SAC20230726001191

PATIENT

DRUGS (7)
  1. CLOBAZAM [Suspect]
     Active Substance: CLOBAZAM
     Indication: Meningitis
     Dosage: 20 MG, Q6H: FOR A TOTAL OF 4 TABLETS A DAY
     Route: 048
     Dates: start: 2008
  2. CLOBAZAM [Suspect]
     Active Substance: CLOBAZAM
     Dosage: 20 MG, Q6H
     Route: 048
     Dates: start: 2019
  3. CLOBAZAM [Suspect]
     Active Substance: CLOBAZAM
     Indication: Epilepsy
  4. CLOBAZAM [Suspect]
     Active Substance: CLOBAZAM
     Indication: Microcephaly
  5. CLOBAZAM [Suspect]
     Active Substance: CLOBAZAM
     Indication: Intellectual disability
  6. KEPPRA [Concomitant]
     Active Substance: LEVETIRACETAM
     Dosage: 1000 MG, Q8H
     Route: 048
  7. KEPPRA [Concomitant]
     Active Substance: LEVETIRACETAM
     Indication: Epilepsy

REACTIONS (4)
  - Epilepsy [Recovered/Resolved]
  - Respiratory arrest [Unknown]
  - Seizure [Recovered/Resolved]
  - Inappropriate schedule of product administration [Unknown]

NARRATIVE: CASE EVENT DATE: 20080101
